FAERS Safety Report 9067316 (Version 1)
Quarter: 2013Q1

REPORT INFORMATION
  Report Type: Spontaneous
  Country: IN (occurrence: IN)
  Receive Date: 20130214
  Receipt Date: 20130214
  Transmission Date: 20140127
  Serious: Yes (Hospitalization)
  Sender: FDA-Public Use
  Company Number: IN-ABBOTT-13P-078-1037582-00

PATIENT
  Age: 15 Year
  Sex: Male

DRUGS (4)
  1. VALPROIC ACID [Suspect]
     Indication: EPILEPSY
  2. VALPROIC ACID [Suspect]
  3. PHENYTOIN [Suspect]
     Indication: EPILEPSY
     Route: 065
  4. CLONAZEPAM [Concomitant]
     Indication: PRODUCT USED FOR UNKNOWN INDICATION

REACTIONS (8)
  - Fall [Unknown]
  - Toxicity to various agents [Unknown]
  - Drug level increased [Unknown]
  - Haematoma [Recovering/Resolving]
  - Eye swelling [Unknown]
  - International normalised ratio abnormal [Unknown]
  - Anaemia [Unknown]
  - Pallor [Unknown]
